FAERS Safety Report 9855004 (Version 1)
Quarter: 2014Q1

REPORT INFORMATION
  Report Type: Spontaneous
  Country: US (occurrence: None)
  Receive Date: 20140123
  Receipt Date: 20140123
  Transmission Date: 20141002
  Serious: Yes (Other)
  Sender: FDA-Public Use
  Company Number: DL2013-0813

PATIENT
  Age: 37 Year
  Sex: Female

DRUGS (2)
  1. MIFEPRISTONE [Suspect]
     Indication: ABORTION INDUCED
     Route: 048
     Dates: start: 20130827
  2. MISOPROSTOL TABLETS, 200 MCG [Suspect]
     Route: 067
     Dates: start: 20130829

REACTIONS (1)
  - Abortion incomplete [None]
